FAERS Safety Report 8466460-4 (Version None)
Quarter: 2012Q2

REPORT INFORMATION
  Report Type: 
  Country: None (occurrence: None)
  Receive Date: 20120626
  Receipt Date: 20120622
  Transmission Date: 20120825
  Serious: No
  Sender: FDA-Public Use
  Company Number: US-TEVA-344839USA

PATIENT
  Sex: Female
  Weight: 75.364 kg

DRUGS (3)
  1. PLAN B ONE-STEP [Suspect]
     Indication: POST COITAL CONTRACEPTION
     Dosage: 1.5 MILLIGRAM;
     Route: 048
     Dates: start: 20120604, end: 20120604
  2. KLONOPIN [Concomitant]
     Indication: ANXIETY
     Dosage: 3 MILLIGRAM;
  3. EFFEXOR [Concomitant]
     Indication: DEPRESSION
     Dosage: 75 MILLIGRAM;

REACTIONS (2)
  - MENSTRUATION IRREGULAR [None]
  - PRURITUS GENERALISED [None]
